FAERS Safety Report 15810444 (Version 1)
Quarter: 2019Q1

REPORT INFORMATION
  Report Type: Spontaneous
  Country: US (occurrence: US)
  Receive Date: 20190111
  Receipt Date: 20190111
  Transmission Date: 20190417
  Serious: Yes (Other)
  Sender: FDA-Public Use
  Company Number: US-ROCHE-2080968

PATIENT
  Age: 36 Year
  Sex: Female

DRUGS (1)
  1. RITUXAN [Suspect]
     Active Substance: RITUXIMAB
     Indication: MULTIPLE SCLEROSIS
     Route: 065
     Dates: start: 201709

REACTIONS (5)
  - Neutropenia [Recovered/Resolved]
  - Intentional product use issue [Unknown]
  - Pyrexia [Unknown]
  - Abscess oral [Unknown]
  - Off label use [Unknown]

NARRATIVE: CASE EVENT DATE: 201802
